FAERS Safety Report 23131008 (Version 1)
Quarter: 2023Q4

REPORT INFORMATION
  Report Type: Spontaneous
  Country: US (occurrence: None)
  Receive Date: 20231031
  Receipt Date: 20231031
  Transmission Date: 20240109
  Serious: Yes (Disabling)
  Sender: FDA-Public Use
  Company Number: None

PATIENT
  Age: 74 Year
  Sex: Female
  Weight: 74.84 kg

DRUGS (1)
  1. REPATHA [Suspect]
     Active Substance: EVOLOCUMAB
     Indication: Blood cholesterol
     Dosage: OTHER QUANTITY : 1 SHOT;?OTHER FREQUENCY : TWICE A MONTH;?
     Dates: start: 20230721, end: 20230722

REACTIONS (6)
  - Urticaria [None]
  - Blood glucose increased [None]
  - Urinary tract infection [None]
  - Peripheral swelling [None]
  - Injection site bruising [None]
  - Pruritus [None]

NARRATIVE: CASE EVENT DATE: 20230722
